FAERS Safety Report 9159478 (Version 1)
Quarter: 2013Q1

REPORT INFORMATION
  Report Type: Spontaneous
  Country: US (occurrence: None)
  Receive Date: 20130312
  Receipt Date: 20130312
  Transmission Date: 20140127
  Serious: Yes (Life-Threatening)
  Sender: FDA-Public Use
  Company Number: None

PATIENT
  Age: 60 Year
  Sex: Female
  Weight: 95.26 kg

DRUGS (2)
  1. CYMBALTA [Suspect]
     Indication: DIABETES MELLITUS
     Dates: start: 20130309, end: 20130309
  2. CYMBALTA [Suspect]
     Indication: NEURALGIA
     Dates: start: 20130309, end: 20130309

REACTIONS (9)
  - Tremor [None]
  - Coordination abnormal [None]
  - Muscle twitching [None]
  - Tremor [None]
  - Muscle rigidity [None]
  - Dizziness [None]
  - Hypertension [None]
  - Feeling hot [None]
  - Hyperhidrosis [None]
